FAERS Safety Report 15547338 (Version 1)
Quarter: 2018Q4

REPORT INFORMATION
  Report Type: Spontaneous
  Country: US (occurrence: US)
  Receive Date: 20181024
  Receipt Date: 20181024
  Transmission Date: 20190205
  Serious: Yes (Hospitalization, Other)
  Sender: FDA-Public Use
  Company Number: US-TEVA-2018-US-966574

PATIENT
  Age: 57 Year
  Sex: Male

DRUGS (15)
  1. AMIKACIN. [Suspect]
     Active Substance: AMIKACIN
     Indication: MYCOBACTERIUM ABSCESSUS INFECTION
     Dosage: ISTILLATION OF AMIKACIN 250 MG IN 100 ML NORMAL SALINE EVERY MONDAY, WEDNESDAY AND FRIDAY VIA WOU...
     Route: 050
  2. CELLCEPT [Suspect]
     Active Substance: MYCOPHENOLATE MOFETIL\MYCOPHENOLATE MOFETIL HYDROCHLORIDE
     Indication: SARCOIDOSIS
     Route: 065
  3. AZITHROMYCIN ANHYDROUS. [Suspect]
     Active Substance: AZITHROMYCIN ANHYDROUS
     Indication: MYCOBACTERIUM ABSCESSUS INFECTION
     Route: 048
  4. CLOFAZIMINE [Suspect]
     Active Substance: CLOFAZIMINE
     Indication: MYCOBACTERIUM ABSCESSUS INFECTION
     Dosage: AT TIMES, THE DOSE WAS TEMPORARILY REDUCED TO 50 MG DAILY
     Route: 048
  5. AZITHROMYCIN ANHYDROUS. [Suspect]
     Active Substance: AZITHROMYCIN ANHYDROUS
     Indication: MYCOBACTERIUM ABSCESSUS INFECTION
     Dosage: LATER, THE DOSE WAS REDUCED TEMPORARILY
     Route: 048
  6. HYDROXYCHLOROQUINE [Concomitant]
     Active Substance: HYDROXYCHLOROQUINE
     Indication: SARCOIDOSIS
     Route: 065
  7. TIGECYCLINE. [Suspect]
     Active Substance: TIGECYCLINE
     Indication: MYCOBACTERIUM ABSCESSUS INFECTION
     Route: 042
  8. VORICONAZOLE. [Concomitant]
     Active Substance: VORICONAZOLE
     Indication: BRONCHOPULMONARY ASPERGILLOSIS
     Dosage: 300 MG EVERY MORNING AND 200 MG EVERY EVENING
     Route: 065
  9. NORMAL SALINE [Concomitant]
     Active Substance: SODIUM CHLORIDE
     Route: 050
  10. METHYLPREDNISOLONE. [Suspect]
     Active Substance: METHYLPREDNISOLONE
     Indication: SARCOIDOSIS
     Dosage: THE DOSAGE WERE TAPERING
     Route: 065
  11. CLOFAZIMINE [Suspect]
     Active Substance: CLOFAZIMINE
     Indication: MYCOBACTERIUM ABSCESSUS INFECTION
     Route: 048
  12. IMURAN [Suspect]
     Active Substance: AZATHIOPRINE
     Indication: SARCOIDOSIS
     Route: 065
  13. PREDNISONE. [Suspect]
     Active Substance: PREDNISONE
     Indication: SARCOIDOSIS
     Route: 065
  14. AMIKACIN. [Suspect]
     Active Substance: AMIKACIN
     Indication: MYCOBACTERIUM ABSCESSUS INFECTION
     Dosage: ADMINISTERED EVERY MONDAY, WEDNESDAY AND FRIDAY
     Route: 042
  15. IMIPENEM AND CILASTATIN [Suspect]
     Active Substance: CILASTATIN SODIUM\IMIPENEM
     Indication: MYCOBACTERIUM ABSCESSUS INFECTION
     Route: 042

REACTIONS (14)
  - Acute kidney injury [Unknown]
  - Appendicitis perforated [Recovering/Resolving]
  - Seizure [Recovered/Resolved]
  - Sleep apnoea syndrome [Unknown]
  - Electrocardiogram QT prolonged [Recovered/Resolved]
  - Osteoporosis [Unknown]
  - Nausea [Unknown]
  - Obesity [Unknown]
  - Abdominal wall infection [Recovering/Resolving]
  - Diarrhoea [Unknown]
  - Deafness [Unknown]
  - Pituitary-dependent Cushing^s syndrome [Unknown]
  - Glucose tolerance impaired [Unknown]
  - Mycobacterium abscessus infection [Recovering/Resolving]
